FAERS Safety Report 7082567-0 (Version None)
Quarter: 2010Q4

REPORT INFORMATION
  Report Type: 
  Country: None (occurrence: None)
  Receive Date: 20101104
  Receipt Date: 20101026
  Transmission Date: 20110411
  Serious: Yes (Other)
  Sender: FDA-Public Use
  Company Number: BE-WYE-H18507710

PATIENT

DRUGS (1)
  1. PANTOMED [Suspect]
     Dosage: UNKNOWN

REACTIONS (3)
  - HYPERSENSITIVITY [None]
  - HYPOTENSION [None]
  - RESPIRATORY DEPRESSION [None]
